FAERS Safety Report 4362894-8 (Version None)
Quarter: 2004Q2

REPORT INFORMATION
  Report Type: 
  Country: None (occurrence: None)
  Receive Date: 20040518
  Receipt Date: 20040504
  Transmission Date: 20050107
  Serious: Yes (Hospitalization)
  Sender: FDA-Public Use
  Company Number: CERZ-10544

PATIENT
  Age: 37 Year
  Sex: Female
  Weight: 55 kg

DRUGS (1)
  1. CEREZYME [Suspect]
     Indication: GAUCHER'S DISEASE
     Dosage: 1600 UNITS Q2WKS IV
     Route: 042
     Dates: start: 19961129

REACTIONS (5)
  - DISEASE RECURRENCE [None]
  - HIP ARTHROPLASTY [None]
  - INFLAMMATION [None]
  - POST PROCEDURAL COMPLICATION [None]
  - THROMBOCYTHAEMIA [None]
